FAERS Safety Report 9390696 (Version 1)
Quarter: 2013Q3

REPORT INFORMATION
  Report Type: Report from Study
  Country: CA (occurrence: CA)
  Receive Date: 20130709
  Receipt Date: 20130709
  Transmission Date: 20140515
  Serious: Yes (Other)
  Sender: FDA-Public Use
  Company Number: CA-JNJFOC-20130620331

PATIENT
  Age: 58 Year
  Sex: Female
  Weight: 59.8 kg

DRUGS (3)
  1. REMICADE [Suspect]
     Indication: CROHN^S DISEASE
     Route: 042
     Dates: start: 201007
  2. ESTRADIOL [Concomitant]
     Route: 065
  3. TYLENOL WITH CODEINE [Concomitant]
     Route: 065

REACTIONS (4)
  - Labyrinthitis [Not Recovered/Not Resolved]
  - Disability [Not Recovered/Not Resolved]
  - Weight decreased [Not Recovered/Not Resolved]
  - Decreased appetite [Not Recovered/Not Resolved]
